FAERS Safety Report 14240071 (Version 1)
Quarter: 2017Q4

REPORT INFORMATION
  Report Type: Spontaneous
  Country: US (occurrence: US)
  Receive Date: 20171128
  Receipt Date: 20171128
  Transmission Date: 20180321
  Serious: Yes (Hospitalization, Other)
  Sender: FDA-Public Use
  Company Number: None

PATIENT
  Sex: Female
  Weight: 63 kg

DRUGS (27)
  1. ADVAIR HFA [Suspect]
     Active Substance: FLUTICASONE PROPIONATE\SALMETEROL XINAFOATE
     Indication: MULTIPLE ALLERGIES
  2. SOLU-MEDROL [Suspect]
     Active Substance: METHYLPREDNISOLONE SODIUM SUCCINATE
     Indication: MULTIPLE ALLERGIES
  3. PREDNISOLONE. [Suspect]
     Active Substance: PREDNISOLONE
     Indication: MULTIPLE ALLERGIES
  4. EPIPEN [Concomitant]
     Active Substance: EPINEPHRINE
  5. PREDNISONE. [Suspect]
     Active Substance: PREDNISONE
     Indication: ASTHMA
  6. TRIAMCINOLONE [Suspect]
     Active Substance: TRIAMCINOLONE
     Indication: MULTIPLE ALLERGIES
  7. PREDNISOLONE. [Suspect]
     Active Substance: PREDNISOLONE
     Indication: ASTHMA
  8. VITAMIN D [Concomitant]
     Active Substance: CHOLECALCIFEROL
  9. OIL OF OREGANO [Concomitant]
  10. ASPIRIN. [Concomitant]
     Active Substance: ASPIRIN
  11. ELIDEL [Suspect]
     Active Substance: PIMECROLIMUS
     Indication: MULTIPLE ALLERGIES
  12. PREDNISOLONE. [Suspect]
     Active Substance: PREDNISOLONE
     Indication: ECZEMA
  13. ATARAX [Concomitant]
     Active Substance: HYDROXYZINE HYDROCHLORIDE
  14. ALBUTEROL NEBULIZERS [Concomitant]
     Active Substance: ALBUTEROL
  15. PREDNISONE. [Suspect]
     Active Substance: PREDNISONE
     Indication: ECZEMA
  16. ADVAIR HFA [Suspect]
     Active Substance: FLUTICASONE PROPIONATE\SALMETEROL XINAFOATE
     Indication: ASTHMA
  17. SOLU-MEDROL [Suspect]
     Active Substance: METHYLPREDNISOLONE SODIUM SUCCINATE
     Indication: ASTHMA
  18. SOLU-MEDROL [Suspect]
     Active Substance: METHYLPREDNISOLONE SODIUM SUCCINATE
     Indication: ECZEMA
  19. INFLAMMA SHIELD [Concomitant]
  20. PREDNISONE. [Suspect]
     Active Substance: PREDNISONE
     Indication: MULTIPLE ALLERGIES
  21. VITAMIN B COMPLEX [Concomitant]
     Active Substance: CYANOCOBALAMIN\DEXPANTHENOL\NIACINAMIDE\PYRIDOXINE HYDROCHLORIDE\RIBOFLAVIN 5^-PHOSPHATE SODIUM\THIAMINE HYDROCHLORIDE\VITAMIN B COMPLEX
  22. FLONASE [Concomitant]
     Active Substance: FLUTICASONE PROPIONATE
  23. TRIAMCINOLONE [Suspect]
     Active Substance: TRIAMCINOLONE
     Indication: ASTHMA
  24. TRIAMCINOLONE [Suspect]
     Active Substance: TRIAMCINOLONE
     Indication: ECZEMA
  25. ELIDEL [Suspect]
     Active Substance: PIMECROLIMUS
     Indication: ASTHMA
  26. ELIDEL [Suspect]
     Active Substance: PIMECROLIMUS
     Indication: ECZEMA
  27. ADVAIR HFA [Suspect]
     Active Substance: FLUTICASONE PROPIONATE\SALMETEROL XINAFOATE
     Indication: ECZEMA

REACTIONS (4)
  - Condition aggravated [None]
  - Asthma [None]
  - Multiple allergies [None]
  - Eczema [None]
